FAERS Safety Report 24242422 (Version 1)
Quarter: 2024Q3

REPORT INFORMATION
  Report Type: Spontaneous
  Country: US (occurrence: US)
  Receive Date: 20240823
  Receipt Date: 20240823
  Transmission Date: 20241016
  Serious: Yes (Hospitalization, Disabling)
  Sender: AMGEN
  Company Number: US-AMGEN-USASP2024165246

PATIENT
  Age: 41 Year
  Sex: Female

DRUGS (4)
  1. CORLANOR [Suspect]
     Active Substance: IVABRADINE HYDROCHLORIDE
     Indication: Inappropriate sinus tachycardia
     Dosage: 5 MILLIGRAM, BID
     Route: 048
     Dates: start: 202403, end: 20240613
  2. CORLANOR [Suspect]
     Active Substance: IVABRADINE HYDROCHLORIDE
     Indication: Off label use
  3. AMLODIPINE [Concomitant]
     Active Substance: AMLODIPINE BESYLATE
     Indication: Blood pressure abnormal
     Dosage: 2.5 MILLIGRAM, QD
     Route: 048
     Dates: start: 20240819
  4. CARVEDILOL [Concomitant]
     Active Substance: CARVEDILOL
     Indication: Blood pressure abnormal
     Dosage: 6.25 MILLIGRAM, QD
     Route: 048
     Dates: start: 20240819

REACTIONS (8)
  - Peroneal nerve palsy [Unknown]
  - Labile blood pressure [Unknown]
  - Arteritis [Unknown]
  - Condition aggravated [Unknown]
  - Hypoaesthesia [Unknown]
  - Sensory loss [Unknown]
  - Ischaemic skin ulcer [Unknown]
  - Off label use [Unknown]

NARRATIVE: CASE EVENT DATE: 20240101
